FAERS Safety Report 14315449 (Version 2)
Quarter: 2018Q2

REPORT INFORMATION
  Report Type: Spontaneous
  Country: US (occurrence: US)
  Receive Date: 20171221
  Receipt Date: 20180613
  Transmission Date: 20180711
  Serious: No
  Sender: FDA-Public Use
  Company Number: US-ACTELION-A-US2017-164512

PATIENT
  Age: 76 Year
  Sex: Female

DRUGS (22)
  1. SILDENAFIL. [Concomitant]
     Active Substance: SILDENAFIL
  2. BENZTROPINE. [Concomitant]
     Active Substance: BENZTROPINE
  3. VENTOLIN [Concomitant]
     Active Substance: ALBUTEROL SULFATE
  4. FLUOXETINE [Concomitant]
     Active Substance: FLUOXETINE HYDROCHLORIDE
     Dosage: 10 MG, UNK
  5. NAPROXEN. [Concomitant]
     Active Substance: NAPROXEN
  6. MULTIVITAMIN [Concomitant]
     Active Substance: VITAMINS
  7. PROBIOTIC [Concomitant]
     Active Substance: PROBIOTICS NOS
  8. TYLENOL [Concomitant]
     Active Substance: ACETAMINOPHEN
  9. NORVASC [Concomitant]
     Active Substance: AMLODIPINE BESYLATE
  10. COGENTIN [Concomitant]
     Active Substance: BENZTROPINE MESYLATE
  11. ASPIRIN. [Concomitant]
     Active Substance: ASPIRIN
  12. METFORMIN [Concomitant]
     Active Substance: METFORMIN HYDROCHLORIDE
  13. FERROUS SULFATE. [Concomitant]
     Active Substance: FERROUS SULFATE
  14. DULERA [Concomitant]
     Active Substance: FORMOTEROL FUMARATE DIHYDRATE\MOMETASONE FUROATE
  15. XARELTO [Concomitant]
     Active Substance: RIVAROXABAN
  16. HYCET [Concomitant]
     Active Substance: ACETAMINOPHEN\HYDROCODONE BITARTRATE
  17. MECLIZINE HCL [Concomitant]
     Active Substance: MECLIZINE HYDROCHLORIDE
  18. GLIPIZIDE. [Concomitant]
     Active Substance: GLIPIZIDE
  19. SEROQUEL [Concomitant]
     Active Substance: QUETIAPINE FUMARATE
  20. OPSUMIT [Suspect]
     Active Substance: MACITENTAN
     Indication: PULMONARY ARTERIAL HYPERTENSION
     Dosage: 10 MG, UNK
     Route: 048
     Dates: start: 20140802
  21. AMLODIPINE [Concomitant]
     Active Substance: AMLODIPINE BESYLATE
  22. SPIRIVA [Concomitant]
     Active Substance: TIOTROPIUM BROMIDE MONOHYDRATE

REACTIONS (4)
  - Amnesia [Unknown]
  - Diarrhoea [Not Recovered/Not Resolved]
  - Abdominal pain lower [Not Recovered/Not Resolved]
  - Drug dose omission [Unknown]
